FAERS Safety Report 9531769 (Version 1)
Quarter: 2013Q3

REPORT INFORMATION
  Report Type: Spontaneous
  Country: US (occurrence: US)
  Receive Date: 20130918
  Receipt Date: 20130918
  Transmission Date: 20140515
  Serious: No
  Sender: FDA-Public Use
  Company Number: US-PFIZER INC-2013265708

PATIENT
  Age: 58 Year
  Sex: 0

DRUGS (1)
  1. PROCARDIA XL [Suspect]
     Dosage: 60 MG, 1X/DAY
     Route: 048

REACTIONS (1)
  - Arthralgia [Unknown]
